FAERS Safety Report 8793869 (Version 1)
Quarter: 2012Q4

REPORT INFORMATION
  Report Type: 
  Country: IT (occurrence: IT)
  Receive Date: 20120917
  Receipt Date: 20120917
  Transmission Date: 20130627
  Serious: Yes (Hospitalization)
  Sender: FDA-Public Use
  Company Number: IT-ASTRAZENECA-2012SE70282

PATIENT
  Age: 28638 Day
  Sex: Female

DRUGS (7)
  1. ROSUVASTATIN [Suspect]
     Indication: HYPERCHOLESTEROLAEMIA
     Route: 048
     Dates: start: 20120801, end: 20120812
  2. ALLOPURINOL [Suspect]
     Indication: GOUT
     Route: 048
     Dates: start: 20120801, end: 20120812
  3. SOTALEX [Concomitant]
  4. ALMARYTM [Concomitant]
  5. COTAREG [Concomitant]
  6. SINTROM [Concomitant]
  7. LANSOX [Concomitant]

REACTIONS (4)
  - Conjunctivitis [Recovering/Resolving]
  - Erythema multiforme [Recovering/Resolving]
  - Mucosal inflammation [Recovering/Resolving]
  - Vaginal inflammation [Recovering/Resolving]
